FAERS Safety Report 9679088 (Version 1)
Quarter: 2013Q4

REPORT INFORMATION
  Report Type: Spontaneous
  Country: GB (occurrence: GB)
  Receive Date: 20131108
  Receipt Date: 20131108
  Transmission Date: 20140711
  Serious: Yes (Life-Threatening, Other)
  Sender: FDA-Public Use
  Company Number: GB-ROXANE LABORATORIES, INC.-2013-RO-01800RO

PATIENT
  Sex: 0

DRUGS (1)
  1. QUETIAPINE FUMARATE [Suspect]
     Indication: FOETAL EXPOSURE DURING PREGNANCY
     Route: 064

REACTIONS (2)
  - Cardiac arrest [Recovered/Resolved]
  - Premature baby [Unknown]
